FAERS Safety Report 8047581-7 (Version None)
Quarter: 2012Q1

REPORT INFORMATION
  Report Type: 
  Country: None (occurrence: None)
  Receive Date: 20120116
  Receipt Date: 20120113
  Transmission Date: 20120608
  Serious: Yes (Hospitalization)
  Sender: FDA-Public Use
  Company Number: US-GLAXOSMITHKLINE-A0958217A

PATIENT
  Age: 51 Year
  Sex: Female

DRUGS (3)
  1. TRACLEER [Concomitant]
     Dosage: 125MG TWICE PER DAY
  2. FLOLAN [Suspect]
     Indication: PULMONARY ARTERIAL HYPERTENSION
     Dosage: 69NGKM PER DAY
     Route: 042
     Dates: start: 20090202
  3. REVATIO [Concomitant]
     Dosage: 20MG THREE TIMES PER DAY

REACTIONS (2)
  - FLUID OVERLOAD [None]
  - ASCITES [None]
